FAERS Safety Report 8343827-6 (Version None)
Quarter: 2012Q2

REPORT INFORMATION
  Report Type: 
  Country: None (occurrence: None)
  Receive Date: 20120508
  Receipt Date: 20120427
  Transmission Date: 20120825
  Serious: Yes (Other)
  Sender: FDA-Public Use
  Company Number: JP-VERTEX PHARMACEUTICALS INC.-AE-2012-006306

PATIENT
  Age: 60 Year
  Sex: Male

DRUGS (16)
  1. PEGINTERFERON ALFA-2B [Concomitant]
     Route: 058
     Dates: start: 20120222, end: 20120222
  2. RIBAVIRIN [Concomitant]
     Route: 048
     Dates: start: 20120215, end: 20120306
  3. JANUVIA [Concomitant]
     Route: 048
  4. PEGINTERFERON ALFA-2B [Concomitant]
     Indication: HEPATITIS C
     Route: 058
     Dates: start: 20120125, end: 20120125
  5. PEGINTERFERON ALFA-2B [Concomitant]
     Route: 058
     Dates: start: 20120215, end: 20120215
  6. RIBAVIRIN [Concomitant]
     Route: 048
     Dates: start: 20120206, end: 20120214
  7. RIBAVIRIN [Concomitant]
     Route: 048
     Dates: start: 20120307
  8. RIBAVIRIN [Concomitant]
     Indication: HEPATITIS C
     Route: 048
     Dates: start: 20120125, end: 20120129
  9. METFORMIN HCL [Concomitant]
     Route: 048
  10. AMARYL [Concomitant]
     Route: 048
  11. RIBAVIRIN [Concomitant]
     Route: 048
     Dates: start: 20120130, end: 20120205
  12. PEGINTERFERON ALFA-2B [Concomitant]
     Route: 058
     Dates: start: 20120201, end: 20120208
  13. ALLOPURINOL [Concomitant]
     Route: 048
  14. OMEPRAZOLE [Concomitant]
     Route: 048
     Dates: start: 20120125
  15. TELAVIC (TELAPREVIR) [Suspect]
     Indication: HEPATITIS C
     Route: 048
     Dates: start: 20120125
  16. PEGINTERFERON ALFA-2B [Concomitant]
     Route: 058
     Dates: start: 20120229

REACTIONS (1)
  - NEUTROPHIL COUNT DECREASED [None]
